FAERS Safety Report 8518367-1 (Version None)
Quarter: 2012Q3

REPORT INFORMATION
  Report Type: 
  Country: None (occurrence: None)
  Receive Date: 20120718
  Receipt Date: 20120710
  Transmission Date: 20120928
  Serious: Yes (Other)
  Sender: FDA-Public Use
  Company Number: DE-ABBOTT-12P-062-0942306-00

PATIENT
  Age: 43 Year
  Sex: Female
  Weight: 92 kg

DRUGS (1)
  1. HUMIRA [Suspect]
     Indication: CROHN'S DISEASE
     Route: 058
     Dates: start: 20110614

REACTIONS (2)
  - ERYTHEMA [None]
  - COLONIC STENOSIS [None]
